FAERS Safety Report 8133011-3 (Version None)
Quarter: 2012Q1

REPORT INFORMATION
  Report Type: 
  Country: None (occurrence: None)
  Receive Date: 20120213
  Receipt Date: 20120203
  Transmission Date: 20120608
  Serious: Yes (Hospitalization, Other)
  Sender: FDA-Public Use
  Company Number: PHHY2012MX001087

PATIENT
  Sex: Female

DRUGS (3)
  1. METFORMIN HCL [Concomitant]
     Dosage: 2 DF, DAILY
     Dates: start: 20051201
  2. METOCLOPRAMIDE [Concomitant]
     Dosage: 1 DF, PER DAY
  3. DIOVAN [Suspect]
     Indication: HYPERTENSION
     Dosage: 80 MG, DAILY
     Dates: start: 20111227

REACTIONS (5)
  - OEDEMA PERIPHERAL [None]
  - LIMB DISCOMFORT [None]
  - CEREBRAL INFARCTION [None]
  - DIZZINESS [None]
  - URINE OUTPUT INCREASED [None]
